FAERS Safety Report 10005348 (Version 2)
Quarter: 2014Q2

REPORT INFORMATION
  Report Type: Spontaneous
  Country: US (occurrence: US)
  Receive Date: 20140312
  Receipt Date: 20140421
  Transmission Date: 20141212
  Serious: Yes (Disabling)
  Sender: FDA-Public Use
  Company Number: PHEH2014US004967

PATIENT
  Sex: Male

DRUGS (2)
  1. TRILEPTAL [Suspect]
     Indication: CONVULSION
     Dosage: UNK UKN, UNK
     Dates: start: 2000
  2. OXCARBAZEPINE [Suspect]
     Indication: CONVULSION
     Dosage: UNK UKN, UNK

REACTIONS (1)
  - Generalised tonic-clonic seizure [Unknown]
